FAERS Safety Report 11323244 (Version 1)
Quarter: 2015Q3

REPORT INFORMATION
  Report Type: Spontaneous
  Country: US (occurrence: None)
  Receive Date: 20150729
  Receipt Date: 20150729
  Transmission Date: 20151125
  Serious: No
  Sender: FDA-Public Use
  Company Number: None

PATIENT
  Age: 23 Year
  Sex: Female

DRUGS (3)
  1. HYDROMORPHONE [Concomitant]
     Active Substance: HYDROMORPHONE
  2. ONDANSETRON [Concomitant]
     Active Substance: ONDANSETRON
  3. ISOVUE [Suspect]
     Active Substance: IOPAMIDOL
     Indication: COMPUTERISED TOMOGRAM
     Route: 042
     Dates: start: 20150222, end: 20150222

REACTIONS (2)
  - Urticaria [None]
  - Pruritus [None]

NARRATIVE: CASE EVENT DATE: 20150222
